FAERS Safety Report 6879808-9 (Version None)
Quarter: 2010Q3

REPORT INFORMATION
  Report Type: 
  Country: None (occurrence: None)
  Receive Date: 20100728
  Receipt Date: 20100714
  Transmission Date: 20110219
  Serious: Yes (Hospitalization)
  Sender: FDA-Public Use
  Company Number: TN-MYLANLABS-2010S1012504

PATIENT
  Age: 46 Year
  Sex: Male

DRUGS (5)
  1. SOLU-MEDROL [Suspect]
     Indication: IMMUNOSUPPRESSION
     Route: 065
     Dates: start: 20070301
  2. THYMOGLOBULIN [Suspect]
     Indication: IMMUNOSUPPRESSION
     Route: 065
     Dates: start: 20070301
  3. MYCOPHENOLATE MOFETIL [Suspect]
     Indication: IMMUNOSUPPRESSION
     Route: 065
     Dates: start: 20070301
  4. PROGRAF [Suspect]
     Indication: IMMUNOSUPPRESSION
     Route: 065
  5. PREDNISONE [Suspect]
     Indication: IMMUNOSUPPRESSION
     Route: 065

REACTIONS (5)
  - CELL DEATH [None]
  - CHOLESTASIS [None]
  - FUNGAL SKIN INFECTION [None]
  - SICKLE CELL ANAEMIA [None]
  - TYPE 1 DIABETES MELLITUS [None]
